FAERS Safety Report 9447788 (Version 1)
Quarter: 2013Q3

REPORT INFORMATION
  Report Type: Spontaneous
  Country: FR (occurrence: None)
  Receive Date: 20130805
  Receipt Date: 20130805
  Transmission Date: 20140515
  Serious: Yes (Other)
  Sender: FDA-Public Use
  Company Number: 1760337

PATIENT
  Age: 39 Year
  Sex: Female

DRUGS (4)
  1. CARBOPLATIN [Suspect]
     Indication: BRONCHIOLOALVEOLAR CARCINOMA
     Dosage: 1 WEEK, (NOT OTHERWISE SPECIFIED)
     Route: 042
     Dates: start: 20120223, end: 20120223
  2. ALIMTA [Suspect]
     Indication: BRONCHIOLOALVEOLAR CARCINOMA
     Dosage: 1 WEEK, (NOT OTHERWISE SPECIFIED)
     Route: 042
     Dates: start: 20120223, end: 20120223
  3. GEFITINIB [Concomitant]
  4. TAXOL [Concomitant]

REACTIONS (3)
  - Hepatocellular injury [None]
  - Cholestasis [None]
  - Rash pruritic [None]
